FAERS Safety Report 23399121 (Version 3)
Quarter: 2025Q1

REPORT INFORMATION
  Report Type: Report from Study
  Country: US (occurrence: US)
  Receive Date: 20240113
  Receipt Date: 20250324
  Transmission Date: 20250409
  Serious: Yes (Hospitalization, Other)
  Sender: AMGEN
  Company Number: US-AMGEN-USASP2024003951

PATIENT
  Age: 77 Year
  Sex: Female

DRUGS (3)
  1. AIMOVIG [Suspect]
     Active Substance: ERENUMAB-AOOE
     Indication: Migraine
     Dosage: 140 MILLIGRAM, QMO
     Route: 058
     Dates: start: 20190827
  2. AIMOVIG [Suspect]
     Active Substance: ERENUMAB-AOOE
     Dosage: 140 MILLIGRAM, QMO
     Route: 058
  3. AIMOVIG [Suspect]
     Active Substance: ERENUMAB-AOOE
     Dosage: 140 MILLIGRAM, QMO
     Route: 058

REACTIONS (16)
  - Colorectostomy [Unknown]
  - Compression fracture [Unknown]
  - Fall [Unknown]
  - Alopecia [Unknown]
  - Abdominal discomfort [Unknown]
  - Wrong technique in product usage process [Unknown]
  - Device difficult to use [Unknown]
  - Post procedural complication [Unknown]
  - Injection site haemorrhage [Unknown]
  - Amnesia [Unknown]
  - Migraine [Unknown]
  - Mobility decreased [Unknown]
  - Headache [Not Recovered/Not Resolved]
  - Tremor [Unknown]
  - Drug dose omission by device [Unknown]
  - Back disorder [Unknown]

NARRATIVE: CASE EVENT DATE: 20230101
